FAERS Safety Report 21498627 (Version 3)
Quarter: 2023Q1

REPORT INFORMATION
  Report Type: Report from Study
  Country: US (occurrence: US)
  Receive Date: 20221024
  Receipt Date: 20230310
  Transmission Date: 20230418
  Serious: No
  Sender: FDA-Public Use
  Company Number: US-NOVARTISTESTPH-NVSC2022US238864

PATIENT
  Age: 11 Year
  Sex: Female

DRUGS (2)
  1. ILARIS [Suspect]
     Active Substance: CANAKINUMAB
     Indication: Juvenile idiopathic arthritis
     Dosage: 136.5 MG, Q6 WEEKS
     Route: 058
     Dates: start: 20201030
  2. ILARIS [Suspect]
     Active Substance: CANAKINUMAB
     Dosage: 136.5 MG, Q8 WEEKS
     Route: 058
     Dates: start: 20201030

REACTIONS (1)
  - Inappropriate schedule of product administration [Unknown]

NARRATIVE: CASE EVENT DATE: 20220601
